FAERS Safety Report 5774027-1 (Version None)
Quarter: 2008Q2

REPORT INFORMATION
  Report Type: 
  Country: None (occurrence: None)
  Receive Date: 20080616
  Receipt Date: 20080603
  Transmission Date: 20081010
  Serious: Yes (Hospitalization)
  Sender: FDA-Public Use
  Company Number: FR-ROCHE-568293

PATIENT
  Sex: Female
  Weight: 45 kg

DRUGS (14)
  1. PEGASYS [Suspect]
     Indication: HEPATITIS C
     Dosage: FORM: INJECTABLE SOLUTION
     Route: 058
     Dates: start: 20071021
  2. COPEGUS [Suspect]
     Indication: HEPATITIS C
     Route: 048
     Dates: start: 20071021
  3. PLAQUENIL [Concomitant]
  4. CORTANCYL [Concomitant]
  5. DIFFU K [Concomitant]
  6. OROCAL D3 [Concomitant]
  7. OROCAL D3 [Concomitant]
  8. ATARAX [Concomitant]
  9. PRIMPERAN TAB [Concomitant]
  10. DOLIPRANE [Concomitant]
  11. ASPEGIC 1000 [Concomitant]
     Dosage: DISAGE: ANTI AGGREGATE DOSAGE
  12. LOXEN [Concomitant]
  13. 1 CONCOMITANT DRUG [Concomitant]
     Dosage: DRUG: LLOMEDINE
  14. LUTENYL [Concomitant]

REACTIONS (3)
  - LYMPHOPENIA [None]
  - MIXED CONNECTIVE TISSUE DISEASE [None]
  - PANCYTOPENIA [None]
